FAERS Safety Report 4585467-0 (Version None)
Quarter: 2005Q1

REPORT INFORMATION
  Report Type: 
  Country: None (occurrence: None)
  Receive Date: 20050214
  Receipt Date: 20050202
  Transmission Date: 20050727
  Serious: Yes (Death)
  Sender: FDA-Public Use
  Company Number: 200510309BCC

PATIENT
  Age: 48 Year
  Sex: Female
  Weight: 68.0396 kg

DRUGS (10)
  1. ALEVE (CAPLET) [Suspect]
     Indication: ABDOMINAL PAIN UPPER
     Dosage: SEE IMAGE
     Route: 048
     Dates: end: 20041219
  2. ALEVE (CAPLET) [Suspect]
     Indication: BACK PAIN
     Dosage: SEE IMAGE
     Route: 048
     Dates: end: 20041219
  3. ALEVE (CAPLET) [Suspect]
     Indication: DYSPNOEA
     Dosage: SEE IMAGE
     Route: 048
     Dates: end: 20041219
  4. ALEVE (CAPLET) [Suspect]
     Indication: ABDOMINAL PAIN UPPER
     Dosage: SEE IMAGE
     Route: 048
     Dates: start: 20040401, end: 20041220
  5. ALEVE (CAPLET) [Suspect]
     Indication: BACK PAIN
     Dosage: SEE IMAGE
     Route: 048
     Dates: start: 20040401, end: 20041220
  6. ALEVE (CAPLET) [Suspect]
     Indication: DYSPNOEA
     Dosage: SEE IMAGE
     Route: 048
     Dates: start: 20040401, end: 20041220
  7. COZAAR [Concomitant]
  8. GLUCOTROL [Concomitant]
  9. BENADRYL ^WARNER-LAMBER^/USA/ [Concomitant]
  10. MELATONIN [Concomitant]

REACTIONS (5)
  - ABDOMINAL PAIN UPPER [None]
  - DYSPNOEA [None]
  - MEDICATION ERROR [None]
  - SOMNOLENCE [None]
  - SPEECH DISORDER [None]
